FAERS Safety Report 24153405 (Version 1)
Quarter: 2024Q3

REPORT INFORMATION
  Report Type: Spontaneous
  Country: US (occurrence: None)
  Receive Date: 20240721
  Receipt Date: 20240721
  Transmission Date: 20241017
  Serious: Yes (Other)
  Sender: Public
  Company Number: None

PATIENT
  Sex: Female

DRUGS (1)
  1. WHITENING CREAM [Suspect]
     Active Substance: ALPHA-ARBUTIN
     Dates: start: 202405, end: 20240518

REACTIONS (6)
  - Product packaging issue [None]
  - Application site erythema [None]
  - Application site swelling [None]
  - Contusion [None]
  - Unintentional use for unapproved indication [None]
  - Product quality issue [None]

NARRATIVE: CASE EVENT DATE: 20240510
